FAERS Safety Report 14661172 (Version 1)
Quarter: 2018Q1

REPORT INFORMATION
  Report Type: Spontaneous
  Country: JP (occurrence: JP)
  Receive Date: 20180320
  Receipt Date: 20180320
  Transmission Date: 20180509
  Serious: Yes (Life-Threatening, Hospitalization)
  Sender: FDA-Public Use
  Company Number: JP-BRACCO-2018JP01280

PATIENT
  Age: 66 Year
  Sex: Female

DRUGS (1)
  1. IOPAMIRON [Suspect]
     Active Substance: IOPAMIDOL
     Indication: DIAGNOSTIC PROCEDURE
     Dosage: 100 ML, SINGLE
     Route: 042
     Dates: start: 20180305, end: 20180305

REACTIONS (5)
  - Pulse absent [Recovered/Resolved]
  - Cold sweat [Recovered/Resolved]
  - Hypersensitivity [Unknown]
  - Depressed level of consciousness [Recovered/Resolved]
  - Asthenia [Recovered/Resolved]

NARRATIVE: CASE EVENT DATE: 20180305
